FAERS Safety Report 23167733 (Version 1)
Quarter: 2023Q4

REPORT INFORMATION
  Report Type: Report from Study
  Country: US (occurrence: US)
  Receive Date: 20231109
  Receipt Date: 20231109
  Transmission Date: 20240109
  Serious: Yes (Other)
  Sender: FDA-Public Use
  Company Number: US-Eisai-EC-2023-151014

PATIENT
  Age: 53 Year
  Sex: Female

DRUGS (1)
  1. LENVIMA [Suspect]
     Active Substance: LENVATINIB
     Indication: Hepatocellular carcinoma
     Route: 048
     Dates: start: 20231013, end: 202310

REACTIONS (3)
  - Renal failure [Unknown]
  - Laryngitis [Not Recovered/Not Resolved]
  - Ammonia increased [Unknown]

NARRATIVE: CASE EVENT DATE: 20231014
